FAERS Safety Report 21093391 (Version 1)
Quarter: 2022Q3

REPORT INFORMATION
  Report Type: Spontaneous
  Country: US (occurrence: US)
  Receive Date: 20220718
  Receipt Date: 20220718
  Transmission Date: 20221027
  Serious: No
  Sender: FDA-Public Use
  Company Number: US-SA-SAC20220714000452

PATIENT
  Sex: Female

DRUGS (2)
  1. PYRITHIONE ZINC [Suspect]
     Active Substance: PYRITHIONE ZINC
     Dosage: UNK
  2. SELSUN BLUE MOISTURIZING [Suspect]
     Active Substance: SELENIUM SULFIDE
     Dosage: UNK

REACTIONS (2)
  - Alopecia [Unknown]
  - Hair texture abnormal [Unknown]
